FAERS Safety Report 9916091 (Version 1)
Quarter: 2014Q1

REPORT INFORMATION
  Report Type: Spontaneous
  Country: US (occurrence: None)
  Receive Date: 20140219
  Receipt Date: 20140219
  Transmission Date: 20141002
  Serious: No
  Sender: FDA-Public Use
  Company Number: None

PATIENT
  Age: 51 Year
  Sex: Female
  Weight: 85.28 kg

DRUGS (1)
  1. LEVAQUIN [Suspect]

REACTIONS (13)
  - Vision blurred [None]
  - Tinnitus [None]
  - Depression [None]
  - Anxiety [None]
  - Crying [None]
  - Irritability [None]
  - Hallucination [None]
  - Abdominal pain [None]
  - Fall [None]
  - Upper limb fracture [None]
  - Joint swelling [None]
  - Arthralgia [None]
  - Sleep disorder [None]
